FAERS Safety Report 23416291 (Version 1)
Quarter: 2024Q1

REPORT INFORMATION
  Report Type: Spontaneous
  Country: US (occurrence: None)
  Receive Date: 20240117
  Receipt Date: 20240117
  Transmission Date: 20240410
  Serious: Yes (Other)
  Sender: FDA-Public Use
  Company Number: None

PATIENT
  Age: 70 Year
  Sex: Male

DRUGS (1)
  1. KESIMPTA [Suspect]
     Active Substance: OFATUMUMAB
     Indication: Multiple sclerosis
     Dosage: FREQUENCY : WEEKLY;?

REACTIONS (6)
  - Multiple sclerosis [None]
  - Gait disturbance [None]
  - Balance disorder [None]
  - Motor dysfunction [None]
  - Musculoskeletal disorder [None]
  - Gait inability [None]
